FAERS Safety Report 21958781 (Version 3)
Quarter: 2023Q1

REPORT INFORMATION
  Report Type: Report from Study
  Country: GT (occurrence: GT)
  Receive Date: 20230206
  Receipt Date: 20230221
  Transmission Date: 20230418
  Serious: Yes (Death, Hospitalization)
  Sender: FDA-Public Use
  Company Number: GT-002147023-NVSC2023GT003519

PATIENT
  Age: 51 Year
  Sex: Female
  Weight: 45.351 kg

DRUGS (1)
  1. KISQALI [Suspect]
     Active Substance: RIBOCICLIB
     Indication: Breast cancer
     Dosage: 600 MG, QD
     Route: 048
     Dates: start: 20221212, end: 20230126

REACTIONS (8)
  - Cardio-respiratory arrest [Fatal]
  - Renal disorder [Unknown]
  - Dehydration [Unknown]
  - Urinary tract infection [Unknown]
  - Weight decreased [Recovering/Resolving]
  - Asthenia [Recovering/Resolving]
  - Vomiting [Recovering/Resolving]
  - Nausea [Recovering/Resolving]

NARRATIVE: CASE EVENT DATE: 20221213
